FAERS Safety Report 20924049 (Version 1)
Quarter: 2022Q2

REPORT INFORMATION
  Report Type: Report from Study
  Country: ES (occurrence: ES)
  Receive Date: 20220607
  Receipt Date: 20220607
  Transmission Date: 20220721
  Serious: Yes (Death, Hospitalization, Other)
  Sender: FDA-Public Use
  Company Number: ES-ELI_LILLY_AND_COMPANY-ES202206000701

PATIENT

DRUGS (3)
  1. GEMCITABINE HYDROCHLORIDE [Suspect]
     Active Substance: GEMCITABINE HYDROCHLORIDE
     Indication: Adenocarcinoma pancreas
     Dosage: 1000 MG/M2, OTHER
     Route: 042
  2. PACLITAXEL [Suspect]
     Active Substance: PACLITAXEL
     Indication: Pancreatic carcinoma
     Dosage: 125 MG/M2, OTHER
     Route: 042
  3. INVESTIGATIONAL PRODUCT [Suspect]
     Active Substance: INVESTIGATIONAL PRODUCT
     Indication: Pancreatic carcinoma
     Dosage: UNK, SINGLE
     Route: 042

REACTIONS (8)
  - Thrombocytopenia [Fatal]
  - Enterocolitis [Fatal]
  - Cardio-respiratory arrest [Fatal]
  - Hepatitis acute [Unknown]
  - Cholecystitis [Unknown]
  - Presyncope [Unknown]
  - Shock haemorrhagic [Unknown]
  - Neutropenia [Unknown]
